FAERS Safety Report 5670910-6 (Version None)
Quarter: 2008Q1

REPORT INFORMATION
  Report Type: 
  Country: None (occurrence: None)
  Receive Date: 20080318
  Receipt Date: 20080311
  Transmission Date: 20080703
  Serious: Yes (Other)
  Sender: FDA-Public Use
  Company Number: B0505400A

PATIENT
  Age: 58 Year
  Weight: 77 kg

DRUGS (3)
  1. WELLBUTRIN [Suspect]
     Indication: DEPRESSION
     Dosage: 150MG TWICE PER DAY
     Route: 048
     Dates: start: 20071212, end: 20071226
  2. INSULINE [Concomitant]
     Indication: DIABETES MELLITUS
  3. THYRAX [Concomitant]
     Indication: HYPOTHYROIDISM
     Dosage: 125MCG PER DAY
     Route: 048

REACTIONS (3)
  - BLOOD GLUCOSE INCREASED [None]
  - INSOMNIA [None]
  - PSORIASIS [None]
